FAERS Safety Report 24593808 (Version 2)
Quarter: 2024Q4

REPORT INFORMATION
  Report Type: Spontaneous
  Country: CN (occurrence: CN)
  Receive Date: 20241108
  Receipt Date: 20241118
  Transmission Date: 20250114
  Serious: Yes (Other)
  Sender: PFIZER
  Company Number: CN-PFIZER INC-PV202400143959

PATIENT
  Age: 23 Year
  Sex: Female
  Weight: 67.5 kg

DRUGS (1)
  1. METHOTREXATE SODIUM [Suspect]
     Active Substance: METHOTREXATE SODIUM
     Indication: Therapeutic procedure
     Dosage: 50.000 MG, 1X/DAY
     Route: 030
     Dates: start: 20241101, end: 20241101

REACTIONS (2)
  - Hyperaemia [Recovering/Resolving]
  - Off label use [Unknown]

NARRATIVE: CASE EVENT DATE: 20241101
